FAERS Safety Report 8007475-X (Version None)
Quarter: 2011Q4

REPORT INFORMATION
  Report Type: 
  Country: None (occurrence: None)
  Receive Date: 20111222
  Receipt Date: 20111222
  Transmission Date: 20120403
  Serious: Yes (Hospitalization)
  Sender: FDA-Public Use
  Company Number: None

PATIENT
  Age: 83 Year
  Sex: Male

DRUGS (1)
  1. WARFARIN SODIUM [Suspect]
     Indication: ATRIAL FIBRILLATION

REACTIONS (5)
  - HEADACHE [None]
  - INTRAVENTRICULAR HAEMORRHAGE [None]
  - ASTHENIA [None]
  - SUBARACHNOID HAEMORRHAGE [None]
  - CEREBRAL SMALL VESSEL ISCHAEMIC DISEASE [None]
